FAERS Safety Report 8742183 (Version 2)
Quarter: 2012Q4

REPORT INFORMATION
  Report Type: 
  Country: US (occurrence: US)
  Receive Date: 20120824
  Receipt Date: 20120928
  Transmission Date: 20130627
  Serious: Yes (Death)
  Sender: FDA-Public Use
  Company Number: PHEH2012US016442

PATIENT
  Age: 90 Year
  Sex: Female

DRUGS (1)
  1. GLEEVEC [Suspect]
     Dosage: 400 mg, daily
     Route: 048
     Dates: start: 20120228

REACTIONS (1)
  - Cerebrovascular accident [Fatal]
